FAERS Safety Report 14447818 (Version 1)
Quarter: 2018Q1

REPORT INFORMATION
  Report Type: Spontaneous
  Country: IN (occurrence: IN)
  Receive Date: 20180126
  Receipt Date: 20180126
  Transmission Date: 20180509
  Serious: Yes (Other)
  Sender: FDA-Public Use
  Company Number: IN-BAYER-2018-014012

PATIENT
  Age: 43 Year
  Sex: Female

DRUGS (6)
  1. NITROGLYCERIN. [Concomitant]
     Active Substance: NITROGLYCERIN
     Dosage: 200 ?G, UNK
  2. PRASUGREL. [Interacting]
     Active Substance: PRASUGREL
     Indication: ANTIPLATELET THERAPY
     Dosage: 60 MG, UNK
  3. ACETYLSALICYLIC ACID({=100 MG) [Suspect]
     Active Substance: ASPIRIN
     Indication: ANTIPLATELET THERAPY
     Dosage: 325 MG, UNK
  4. HEPARIN [Interacting]
     Active Substance: HEPARIN SODIUM
     Dosage: 6000 IU, UNK
  5. DILTIAZEM. [Concomitant]
     Active Substance: DILTIAZEM
     Dosage: 2.5 MG, UNK
  6. HEPARIN [Interacting]
     Active Substance: HEPARIN SODIUM
     Dosage: 2500 IU, UNK

REACTIONS (7)
  - Drug administration error [None]
  - Haematoma [Recovered/Resolved]
  - Labelled drug-drug interaction medication error [None]
  - Vascular pseudoaneurysm [Recovered/Resolved]
  - Pain in extremity [Recovered/Resolved]
  - Tenderness [Recovered/Resolved]
  - Ecchymosis [Recovered/Resolved]
